FAERS Safety Report 23020256 (Version 1)
Quarter: 2023Q4

REPORT INFORMATION
  Report Type: Spontaneous
  Country: US (occurrence: None)
  Receive Date: 20231002
  Receipt Date: 20231002
  Transmission Date: 20240110
  Serious: Yes (Hospitalization)
  Sender: FDA-Public Use
  Company Number: None

PATIENT
  Age: 64 Year
  Sex: Male

DRUGS (2)
  1. LENALIDOMIDE [Suspect]
     Active Substance: LENALIDOMIDE
     Indication: Plasma cell myeloma
     Dosage: FREQUENCY : DAILY;?
     Route: 048
     Dates: start: 20230913
  2. ASPIRIN [Suspect]
     Active Substance: ASPIRIN

REACTIONS (3)
  - Bacteraemia [None]
  - Epistaxis [None]
  - Therapy interrupted [None]

NARRATIVE: CASE EVENT DATE: 20230913
